FAERS Safety Report 24166158 (Version 2)
Quarter: 2024Q3

REPORT INFORMATION
  Report Type: Spontaneous
  Country: DE (occurrence: DE)
  Receive Date: 20240802
  Receipt Date: 20240925
  Transmission Date: 20241017
  Serious: Yes (Hospitalization, Other)
  Sender: TEVA
  Company Number: DE-TEVA-VS-3226842

PATIENT
  Age: 38 Year
  Sex: Male

DRUGS (7)
  1. CISPLATIN [Suspect]
     Active Substance: CISPLATIN
     Indication: Bladder cancer
     Dosage: 1 MG/ML KONZENTRAT ZUR HERSTELLUNG EINER INFUSIONSLOSUNG
     Route: 065
     Dates: start: 20240419
  2. CISPLATIN [Suspect]
     Active Substance: CISPLATIN
     Indication: Bladder cancer
     Dosage: 1 MG/ML KONZENTRAT ZUR HERSTELLUNG EINER INFUSIONSLOSUNG
     Route: 065
     Dates: start: 20240516, end: 20240517
  3. NIVOLUMAB [Concomitant]
     Active Substance: NIVOLUMAB
     Indication: Bladder cancer
     Route: 065
     Dates: start: 20240528
  4. NIVOLUMAB [Concomitant]
     Active Substance: NIVOLUMAB
     Indication: Bladder cancer
     Route: 065
     Dates: start: 20240418
  5. GEMCITABINE [Suspect]
     Active Substance: GEMCITABINE
     Indication: Bladder cancer
     Route: 065
     Dates: start: 20240418
  6. GEMCITABINE [Suspect]
     Active Substance: GEMCITABINE
     Indication: Bladder cancer
     Route: 065
     Dates: start: 20240425
  7. GEMCITABINE [Suspect]
     Active Substance: GEMCITABINE
     Indication: Bladder cancer
     Route: 065
     Dates: start: 20240515, end: 20240516

REACTIONS (3)
  - Necrosis [Unknown]
  - Haemoglobin decreased [Unknown]
  - Hypoaesthesia [Unknown]

NARRATIVE: CASE EVENT DATE: 20240101
